FAERS Safety Report 5082113-7 (Version None)
Quarter: 2006Q3

REPORT INFORMATION
  Report Type: 
  Country: None (occurrence: None)
  Receive Date: 20060817
  Receipt Date: 20060811
  Transmission Date: 20061208
  Serious: Yes (Death, Other)
  Sender: FDA-Public Use
  Company Number: GB-RB-3708-2006

PATIENT
  Age: 41 Year
  Sex: Male
  Weight: 72 kg

DRUGS (4)
  1. BUPRENORPHINE HCL [Suspect]
     Route: 065
     Dates: start: 20051115, end: 20051128
  2. MORPHINE [Suspect]
     Indication: DRUG USE FOR UNKNOWN INDICATION
     Dosage: DOSAGE UNKNOWN
     Route: 065
  3. DIHYDROCODEINE [Concomitant]
     Dosage: DOSAGE UNKNOWN
     Route: 065
     Dates: start: 20010101, end: 20051001
  4. DOTHIEPIN HYDROCHLORIDE [Concomitant]
     Dosage: DOSAGE UNKNOWN
     Route: 065
     Dates: start: 20030601

REACTIONS (3)
  - CARDIAC VALVE DISEASE [None]
  - OVERDOSE [None]
  - PULMONARY OEDEMA [None]
